FAERS Safety Report 18693474 (Version 2)
Quarter: 2021Q2

REPORT INFORMATION
  Report Type: Spontaneous
  Country: US (occurrence: US)
  Receive Date: 20210104
  Receipt Date: 20210429
  Transmission Date: 20210717
  Serious: Yes (Hospitalization, Other)
  Sender: FDA-Public Use
  Company Number: US-DRREDDYS-USA/USA/20/0130591

PATIENT
  Age: 32 Year
  Sex: Male

DRUGS (1)
  1. OMEPRAZOLE DELAYED RELEASE CAPSULES 40 MG [Suspect]
     Active Substance: OMEPRAZOLE
     Indication: GASTROOESOPHAGEAL REFLUX DISEASE

REACTIONS (5)
  - Bacterial infection [Recovered/Resolved]
  - Liver abscess [Recovered/Resolved]
  - Incorrect product administration duration [Recovered/Resolved]
  - Veillonella infection [Recovered/Resolved]
  - Blood creatinine increased [Recovered/Resolved]
